FAERS Safety Report 24680603 (Version 3)
Quarter: 2024Q4

REPORT INFORMATION
  Report Type: Spontaneous
  Country: ES (occurrence: ES)
  Receive Date: 20241129
  Receipt Date: 20241205
  Transmission Date: 20250115
  Serious: Yes (Hospitalization, Other)
  Sender: PFIZER
  Company Number: ES-ROCHE-10000137840

PATIENT
  Age: 70 Year
  Sex: Female

DRUGS (17)
  1. DOXORUBICIN HYDROCHLORIDE [Suspect]
     Active Substance: DOXORUBICIN HYDROCHLORIDE
     Indication: High-grade B-cell lymphoma
     Dosage: 91 MG, EVERY 3 WEEKS
     Route: 042
     Dates: start: 20240828
  2. DOXORUBICIN HYDROCHLORIDE [Suspect]
     Active Substance: DOXORUBICIN HYDROCHLORIDE
     Dosage: 88 MG, EVERY 3 WEEKS
     Route: 042
     Dates: start: 20241030
  3. RITUXIMAB [Suspect]
     Active Substance: RITUXIMAB
     Indication: High-grade B-cell lymphoma
     Dosage: 50 MG, EVERY 3 WEEKS
     Route: 042
     Dates: start: 20240828
  4. RITUXIMAB [Suspect]
     Active Substance: RITUXIMAB
     Dosage: 686 MG, EVERY 3 WEEKS
     Route: 042
     Dates: start: 20240828
  5. RITUXIMAB [Suspect]
     Active Substance: RITUXIMAB
     Dosage: 664 MG, EVERY 3 WEEKS
     Route: 042
     Dates: start: 20241030
  6. VINCRISTINE SULFATE [Suspect]
     Active Substance: VINCRISTINE SULFATE
     Indication: High-grade B-cell lymphoma
     Dosage: 2 MG, EVERY 3 WEEKS
     Route: 042
     Dates: start: 20240828
  7. APIXABAN [Suspect]
     Active Substance: APIXABAN
     Indication: High-grade B-cell lymphoma
     Dosage: 2.5 MG, 2X/DAY
     Route: 048
     Dates: start: 20240828
  8. GOLCADOMIDE [Suspect]
     Active Substance: GOLCADOMIDE
     Indication: High-grade B-cell lymphoma
     Dosage: UNK UNK, 1X/DAY
     Route: 048
     Dates: start: 20240828
  9. CYCLOPHOSPHAMIDE [Suspect]
     Active Substance: CYCLOPHOSPHAMIDE
     Indication: High-grade B-cell lymphoma
     Dosage: 1372 MG, EVERY 3 WEEKS
     Route: 042
     Dates: start: 20240828
  10. CYCLOPHOSPHAMIDE [Suspect]
     Active Substance: CYCLOPHOSPHAMIDE
     Dosage: 1327 MG, EVERY 3 WEEKS
     Route: 042
     Dates: start: 20241030
  11. PREDNISONE [Suspect]
     Active Substance: PREDNISONE
     Indication: High-grade B-cell lymphoma
     Dosage: 100 MG, 1X/DAY
     Route: 048
     Dates: start: 20240829
  12. PREDNISOLONE [Suspect]
     Active Substance: PREDNISOLONE
     Indication: High-grade B-cell lymphoma
     Dosage: 80 MG, 1X/DAY
     Route: 042
     Dates: start: 20240828
  13. PRIMPERAN [Concomitant]
     Active Substance: METOCLOPRAMIDE HYDROCHLORIDE
     Dosage: 10 MG
     Dates: start: 20240828
  14. OMEPRAZOLE [Concomitant]
     Active Substance: OMEPRAZOLE
     Dosage: 20 MG, 1X/DAY
     Dates: start: 20240919
  15. CODEINE PHOSPHATE [Concomitant]
     Active Substance: CODEINE PHOSPHATE
     Indication: Cough
     Dosage: 28.7 MG
     Route: 048
     Dates: start: 20241010, end: 20241025
  16. NEULASTA [Concomitant]
     Active Substance: PEGFILGRASTIM
     Dosage: 6 MG
     Dates: start: 20241031, end: 20241031
  17. LOPERAMIDE [Concomitant]
     Active Substance: LOPERAMIDE
     Indication: Diarrhoea
     Dosage: 2 MG, 1X/DAY
     Route: 048
     Dates: start: 20241105, end: 20241111

REACTIONS (4)
  - Gastrointestinal haemorrhage [Recovered/Resolved]
  - Thrombocytopenia [Unknown]
  - Anaemia [Unknown]
  - Off label use [Unknown]

NARRATIVE: CASE EVENT DATE: 20240828
